FAERS Safety Report 4283607-4 (Version None)
Quarter: 2004Q1

REPORT INFORMATION
  Report Type: 
  Country: None (occurrence: None)
  Receive Date: 20040121
  Receipt Date: 20030905
  Transmission Date: 20041129
  Serious: Yes (Other)
  Sender: FDA-Public Use
  Company Number: A03200302066

PATIENT
  Age: 69 Year
  Sex: Male
  Weight: 87.0906 kg

DRUGS (4)
  1. PLAVIX [Suspect]
     Indication: CORONARY ARTERIAL STENT INSERTION
     Dosage: 75 MG QD - ORAL
     Route: 048
     Dates: start: 20030723, end: 20030701
  2. PRAVACHOL [Suspect]
     Indication: STENT PLACEMENT
     Dosage: 40 MG QD - ORAL
     Route: 048
     Dates: start: 20030710
  3. METOPROLOL TARTRATE [Concomitant]
  4. UBIDECARENONE [Concomitant]

REACTIONS (4)
  - GROIN PAIN [None]
  - SERUM FERRITIN INCREASED [None]
  - SPLENIC HAEMORRHAGE [None]
  - SPLENOMEGALY [None]
